FAERS Safety Report 9701637 (Version 2)
Quarter: 2013Q4

REPORT INFORMATION
  Report Type: Spontaneous
  Country: US (occurrence: US)
  Receive Date: 20131119
  Receipt Date: 20131119
  Transmission Date: 20140711
  Serious: Yes (Other)
  Sender: FDA-Public Use
  Company Number: US-ORACLE-2011S1000067

PATIENT
  Age: 45 Year
  Sex: Male
  Weight: 102.06 kg

DRUGS (7)
  1. KRYSTEXXA INJECTION [Suspect]
     Indication: GOUT
     Route: 042
     Dates: start: 20110826, end: 20110826
  2. KRYSTEXXA INJECTION [Suspect]
     Indication: GOUT
     Route: 042
     Dates: start: 20110801, end: 20110801
  3. SOLUMEDROL [Concomitant]
     Indication: PREMEDICATION
     Route: 042
     Dates: start: 20110826, end: 20110826
  4. SOLUMEDROL [Concomitant]
     Indication: PREMEDICATION
     Route: 042
     Dates: start: 20110826, end: 20110826
  5. BENADRYL /01563701/ [Concomitant]
     Indication: PREMEDICATION
     Route: 048
     Dates: start: 201108, end: 20110826
  6. TYLENOL /00020001/ [Concomitant]
     Indication: PREMEDICATION
     Route: 048
     Dates: start: 20110826, end: 20110826
  7. CLARITIN /00917501/ [Concomitant]
     Indication: PREMEDICATION
     Route: 048
     Dates: start: 20110826, end: 20110826

REACTIONS (3)
  - Infusion related reaction [Recovered/Resolved]
  - Blood uric acid increased [Not Recovered/Not Resolved]
  - Treatment noncompliance [Unknown]
